FAERS Safety Report 4389023-9 (Version None)
Quarter: 2004Q2

REPORT INFORMATION
  Report Type: 
  Country: None (occurrence: None)
  Receive Date: 20040628
  Receipt Date: 20040615
  Transmission Date: 20050107
  Serious: Yes (Other)
  Sender: FDA-Public Use
  Company Number: 2004040743

PATIENT

DRUGS (1)
  1. ZITHROMAX [Suspect]
     Indication: ILL-DEFINED DISORDER
     Dosage: (1 D), ORAL
     Route: 048
     Dates: start: 20040603, end: 20040605

REACTIONS (2)
  - ERYTHEMA MULTIFORME [None]
  - GENERALISED OEDEMA [None]
